FAERS Safety Report 21177275 (Version 1)
Quarter: 2022Q3

REPORT INFORMATION
  Report Type: Spontaneous
  Country: US (occurrence: US)
  Receive Date: 20220805
  Receipt Date: 20220805
  Transmission Date: 20221027
  Serious: No
  Sender: FDA-Public Use
  Company Number: US-BAYER-2022A106462

PATIENT
  Sex: Female

DRUGS (1)
  1. MIRENA [Suspect]
     Active Substance: LEVONORGESTREL
     Dosage: 20?G/DAY
     Route: 015

REACTIONS (6)
  - Rash [None]
  - Arthralgia [None]
  - Oedema peripheral [None]
  - Gait disturbance [None]
  - Pain in extremity [None]
  - Unintentional medical device removal [None]
